FAERS Safety Report 8234201-1 (Version None)
Quarter: 2012Q1

REPORT INFORMATION
  Report Type: 
  Country: None (occurrence: None)
  Receive Date: 20120326
  Receipt Date: 20120314
  Transmission Date: 20120608
  Serious: Yes (Hospitalization, Other)
  Sender: FDA-Public Use
  Company Number: JP-ELI_LILLY_AND_COMPANY-JP201203004218

PATIENT
  Age: 76 Year
  Sex: Female

DRUGS (2)
  1. CALCIUM CARBONATE [Concomitant]
     Indication: OSTEOPOROSIS
  2. FORTEO [Suspect]
     Indication: OSTEOPOROSIS
     Dosage: 20 UG, QD
     Route: 058
     Dates: start: 20111201, end: 20120301

REACTIONS (8)
  - ALTERED STATE OF CONSCIOUSNESS [None]
  - HYPOTHERMIA [None]
  - SPEECH DISORDER [None]
  - OEDEMA [None]
  - BLOOD CREATINE PHOSPHOKINASE INCREASED [None]
  - MUSCULAR WEAKNESS [None]
  - ASTHENIA [None]
  - NAUSEA [None]
